FAERS Safety Report 5238064-8 (Version None)
Quarter: 2007Q1

REPORT INFORMATION
  Report Type: 
  Country: None (occurrence: None)
  Receive Date: 20070215
  Receipt Date: 20070206
  Transmission Date: 20070707
  Serious: Yes (Disabling, Other)
  Sender: FDA-Public Use
  Company Number: FR-JNJFOC-20061205808

PATIENT
  Age: 72 Year
  Sex: Female
  Weight: 82 kg

DRUGS (8)
  1. REMICADE [Suspect]
     Indication: RHEUMATOID ARTHRITIS
     Route: 042
  2. CORTANCYL [Suspect]
     Indication: RHEUMATOID ARTHRITIS
     Route: 048
  3. FOSAMAX [Concomitant]
     Indication: OSTEOPOROSIS
     Route: 048
  4. MOPRAL [Concomitant]
     Route: 048
  5. CELEBREX [Concomitant]
     Indication: ARTHRALGIA
     Route: 048
  6. HYTACAND [Concomitant]
     Indication: HYPERTENSION
     Route: 048
  7. METHOTREXATE [Concomitant]
     Indication: RHEUMATOID ARTHRITIS
     Route: 048
  8. NEXIUM [Concomitant]
     Route: 065

REACTIONS (1)
  - BREAST NEOPLASM [None]
